FAERS Safety Report 24374174 (Version 1)
Quarter: 2024Q3

REPORT INFORMATION
  Report Type: Spontaneous
  Country: DE (occurrence: DE)
  Receive Date: 20240927
  Receipt Date: 20240927
  Transmission Date: 20241017
  Serious: Yes (Other)
  Sender: TEVA
  Company Number: DE-EMA-DD-20181016-deepevhumanp-094908

PATIENT
  Age: 51 Year
  Sex: Male
  Weight: 90 kg

DRUGS (6)
  1. BISOPROLOL [Suspect]
     Active Substance: BISOPROLOL\BISOPROLOL FUMARATE
     Indication: Product used for unknown indication
     Dosage: TIME INTERVAL: TOTAL: BISOPROLOL FUMARATE, 75 MG, SINGLE (75 MG ONCE/SINGLE)
     Route: 048
     Dates: start: 20180802, end: 20180802
  2. METOPROLOL TARTRATE [Suspect]
     Active Substance: METOPROLOL TARTRATE
     Indication: Product used for unknown indication
     Dosage: TIME INTERVAL: TOTAL: 1000 MG, SINGLE (1000 MG ONCE/SINGLE)
     Route: 048
     Dates: start: 20180802, end: 20180802
  3. PIPAMPERONE [Suspect]
     Active Substance: PIPAMPERONE
     Indication: Product used for unknown indication
     Dosage: TIME INTERVAL: TOTAL: 560 MG, SINGLE (560 MG ONCE/SINGLE)
     Route: 048
     Dates: start: 20180802, end: 20180802
  4. ALCOHOL [Suspect]
     Active Substance: ALCOHOL
     Indication: Product used for unknown indication
     Dosage: TIME INTERVAL: TOTAL: UNK, REPORTED AS MANY LITERS, ONCE/SINGLE ADMINISTRATION, TOTAL
     Route: 048
     Dates: start: 20180802, end: 20180802
  5. SERTRALINE [Suspect]
     Active Substance: SERTRALINE HYDROCHLORIDE
     Indication: Product used for unknown indication
     Dosage: TIME INTERVAL: TOTAL: SERTRALINE HCL, 150 MG, SINGLE (150 MG ONCE/SINGLE)
     Route: 048
     Dates: start: 20180802, end: 20180802
  6. RAMIPRIL [Suspect]
     Active Substance: RAMIPRIL
     Indication: Product used for unknown indication
     Dosage: TIME INTERVAL: TOTAL: 30 MG, SINGLE (30 MG ONCE/SINGLE)
     Route: 048
     Dates: start: 20180802, end: 20180802

REACTIONS (2)
  - Hypotension [Unknown]
  - Intentional overdose [Unknown]

NARRATIVE: CASE EVENT DATE: 20180802
